FAERS Safety Report 25929093 (Version 1)
Quarter: 2025Q4

REPORT INFORMATION
  Report Type: Spontaneous
  Country: US (occurrence: US)
  Receive Date: 20251016
  Receipt Date: 20251016
  Transmission Date: 20260118
  Serious: No
  Sender: NOVARTIS
  Company Number: US-SANDOZ-SDZ2025US074933

PATIENT
  Age: 80 Year
  Sex: Female

DRUGS (5)
  1. ROSUVASTATIN [Suspect]
     Active Substance: ROSUVASTATIN
     Indication: Product used for unknown indication
     Dosage: 5 MG, (2D, 5 MG EVERY OTHER DAY)
     Route: 065
  2. VALSARTAN [Suspect]
     Active Substance: VALSARTAN
     Indication: Product used for unknown indication
     Dosage: 160 MG, QD, (80 MG, 2X/DAY)
     Route: 065
     Dates: start: 2015
  3. VOQUEZNA [Suspect]
     Active Substance: VONOPRAZAN FUMARATE
     Indication: Product used for unknown indication
     Dosage: 20 MG, (20 MG, 1X/DAY,)
     Route: 048
     Dates: start: 20250806, end: 20250813
  4. VALSARTAN [Concomitant]
     Active Substance: VALSARTAN
     Indication: Product used for unknown indication
     Dosage: 80 MG, (80 MG 2 X DAY)
     Route: 065
     Dates: start: 2015
  5. METFORMIN [Concomitant]
     Active Substance: METFORMIN HYDROCHLORIDE
     Indication: Product used for unknown indication
     Dosage: UNK
     Route: 065

REACTIONS (9)
  - Peripheral swelling [Unknown]
  - Abdominal pain upper [Unknown]
  - Pain [Unknown]
  - Back pain [Unknown]
  - Bone pain [Unknown]
  - Pain in extremity [Unknown]
  - Malaise [Unknown]
  - Headache [Unknown]
  - Drug interaction [Unknown]

NARRATIVE: CASE EVENT DATE: 20250813
